FAERS Safety Report 20887240 (Version 1)
Quarter: 2022Q2

REPORT INFORMATION
  Report Type: Spontaneous
  Country: US (occurrence: US)
  Receive Date: 20220528
  Receipt Date: 20220528
  Transmission Date: 20220721
  Serious: Yes (Other)
  Sender: FDA-Public Use
  Company Number: US-Accord-264463

PATIENT
  Age: 63 Year
  Sex: Male
  Weight: 118.39 kg

DRUGS (11)
  1. AMLODIPINE [Suspect]
     Active Substance: AMLODIPINE BESYLATE
     Indication: Product used for unknown indication
  2. MIFEPRISTONE [Suspect]
     Active Substance: MIFEPRISTONE
     Indication: Cushing^s syndrome
     Dosage: QD
     Route: 048
     Dates: start: 20210222, end: 20210319
  3. ASPIRIN [Concomitant]
     Active Substance: ASPIRIN
  4. CARVEDILOL [Concomitant]
     Active Substance: CARVEDILOL
  5. FLUTICASONE [Concomitant]
     Active Substance: FLUTICASONE
  6. LORATADINE [Concomitant]
     Active Substance: LORATADINE
  7. LOSARTAN [Concomitant]
     Active Substance: LOSARTAN
  8. NITROGLYCERIN [Concomitant]
     Active Substance: NITROGLYCERIN
  9. PANTOPRAZOLE [Concomitant]
     Active Substance: PANTOPRAZOLE
  10. TESTOSTERONE [Concomitant]
     Active Substance: TESTOSTERONE
  11. BACLOFEN [Concomitant]
     Active Substance: BACLOFEN

REACTIONS (16)
  - Papilloedema [Unknown]
  - Blood potassium decreased [Recovered/Resolved]
  - Kidney infection [Recovering/Resolving]
  - Pollakiuria [Not Recovered/Not Resolved]
  - Micturition urgency [Unknown]
  - Urine ketone body present [Unknown]
  - Ear infection [Unknown]
  - Pyrexia [Not Recovered/Not Resolved]
  - Blepharospasm [Unknown]
  - Vision blurred [Unknown]
  - Headache [Recovered/Resolved]
  - Constipation [Unknown]
  - Dry mouth [Unknown]
  - Nausea [Not Recovered/Not Resolved]
  - Vomiting [Recovered/Resolved]
  - Blood pressure increased [Unknown]

NARRATIVE: CASE EVENT DATE: 20210222
